FAERS Safety Report 7335445-3 (Version None)
Quarter: 2011Q1

REPORT INFORMATION
  Report Type: 
  Country: None (occurrence: None)
  Receive Date: 20110307
  Receipt Date: 20110302
  Transmission Date: 20110831
  Serious: Yes (Death, Congenital Anomaly, Other)
  Sender: FDA-Public Use
  Company Number: DE-ASTRAZENECA-2009SE28298

PATIENT
  Age: 0 Year
  Sex: Male
  Weight: 2 kg

DRUGS (1)
  1. CANDESARTAN [Suspect]
     Route: 064

REACTIONS (8)
  - SKULL MALFORMATION [None]
  - PERSISTENT FOETAL CIRCULATION [None]
  - PREMATURE BABY [None]
  - NEONATAL HEPATOMEGALY [None]
  - PULMONARY HYPOPLASIA [None]
  - PNEUMOTHORAX [None]
  - NEONATAL ASPHYXIA [None]
  - EXTREMITY CONTRACTURE [None]
